FAERS Safety Report 9244789 (Version 1)
Quarter: 2013Q2

REPORT INFORMATION
  Report Type: Spontaneous
  Country: FI (occurrence: FI)
  Receive Date: 20130422
  Receipt Date: 20130422
  Transmission Date: 20140414
  Serious: Yes (Hospitalization)
  Sender: FDA-Public Use
  Company Number: FI-JNJFOC-20130408263

PATIENT
  Age: 17 Year
  Sex: 0
  Weight: 34 kg

DRUGS (4)
  1. REMICADE [Suspect]
     Indication: SARCOIDOSIS
     Route: 042
  2. REMICADE [Suspect]
     Indication: SARCOIDOSIS
     Route: 042
  3. PREDNISOLONE [Concomitant]
     Indication: SARCOIDOSIS
     Route: 065
  4. METHOTREXATE [Concomitant]
     Indication: SARCOIDOSIS
     Route: 065

REACTIONS (3)
  - Right ventricular failure [Not Recovered/Not Resolved]
  - Sarcoidosis [Not Recovered/Not Resolved]
  - Off label use [Unknown]
